FAERS Safety Report 6717867-4 (Version None)
Quarter: 2010Q2

REPORT INFORMATION
  Report Type: 
  Country: None (occurrence: None)
  Receive Date: 20100510
  Receipt Date: 20100506
  Transmission Date: 20101027
  Serious: Yes (Life-Threatening, Hospitalization, Disabling)
  Sender: FDA-Public Use
  Company Number: US-MERCK-1004USA03940

PATIENT
  Age: 57 Year
  Sex: Female

DRUGS (10)
  1. ISENTRESS [Suspect]
     Indication: HIV INFECTION
     Route: 048
     Dates: start: 20091201, end: 20100331
  2. TRUVADA [Concomitant]
     Route: 065
  3. METHADONE HYDROCHLORIDE [Concomitant]
     Route: 065
  4. CLONAZEPAM [Concomitant]
     Route: 065
  5. ABILIFY [Concomitant]
     Route: 065
  6. AMBIEN [Concomitant]
     Route: 065
  7. ZOLOFT [Concomitant]
     Route: 065
  8. REMERON [Concomitant]
     Route: 065
  9. SODIUM CHLORIDE [Concomitant]
     Route: 065
  10. ALBUTEROL [Concomitant]
     Route: 065

REACTIONS (3)
  - EOSINOPHILIA [None]
  - NAUSEA [None]
  - VOMITING [None]
